FAERS Safety Report 9276449 (Version 1)
Quarter: 2013Q2

REPORT INFORMATION
  Report Type: Spontaneous
  Country: US (occurrence: US)
  Receive Date: 20130507
  Receipt Date: 20130507
  Transmission Date: 20140414
  Serious: Yes (Hospitalization)
  Sender: FDA-Public Use
  Company Number: US-BAYER-2013-056777

PATIENT
  Age: 33 Year
  Sex: Female
  Weight: 65.76 kg

DRUGS (4)
  1. YAZ [Suspect]
  2. BEYAZ [Suspect]
  3. AMOXICILLIN [Concomitant]
     Dosage: 500 MG, UNK
     Dates: start: 20120322
  4. PERCOCET [Concomitant]

REACTIONS (2)
  - Deep vein thrombosis [None]
  - Pulmonary embolism [None]
